FAERS Safety Report 5813363-7 (Version None)
Quarter: 2008Q3

REPORT INFORMATION
  Report Type: 
  Country: None (occurrence: None)
  Receive Date: 20080717
  Receipt Date: 20080711
  Transmission Date: 20090109
  Serious: Yes (Other)
  Sender: FDA-Public Use
  Company Number: FR-ROCHE-575474

PATIENT
  Age: 89 Year
  Sex: Female

DRUGS (1)
  1. CYMEVAN [Suspect]
     Indication: DRUG USE FOR UNKNOWN INDICATION
     Dosage: FORM: INJECTABLE SOLUTION.
     Route: 065

REACTIONS (2)
  - DRUG ABUSE [None]
  - NO ADVERSE EVENT [None]
